FAERS Safety Report 6029972-9 (Version None)
Quarter: 2009Q1

REPORT INFORMATION
  Report Type: 
  Country: None (occurrence: None)
  Receive Date: 20090107
  Receipt Date: 20090106
  Transmission Date: 20090719
  Serious: Yes (Life-Threatening, Hospitalization, Other)
  Sender: FDA-Public Use
  Company Number: B0545237A

PATIENT
  Age: 44 Year
  Sex: Male
  Weight: 66 kg

DRUGS (3)
  1. ABACAVIR SULFATE/LAMIVUDINE [Suspect]
     Indication: HIV INFECTION
     Dosage: 1TAB PER DAY
     Route: 048
     Dates: start: 20080206
  2. EFAVIRENZ [Concomitant]
     Indication: HIV INFECTION
     Dosage: 600MG PER DAY
     Route: 048
     Dates: start: 20080206
  3. ACYCLOVIR [Concomitant]
     Indication: PROPHYLAXIS
     Dosage: 400MG TWICE PER DAY
     Route: 048
     Dates: start: 20020814

REACTIONS (2)
  - INTRACARDIAC THROMBUS [None]
  - MYOCARDIAL INFARCTION [None]
